FAERS Safety Report 16753559 (Version 1)
Quarter: 2019Q3

REPORT INFORMATION
  Report Type: Spontaneous
  Country: GB (occurrence: GB)
  Receive Date: 20190829
  Receipt Date: 20190829
  Transmission Date: 20191005
  Serious: Yes (Other)
  Sender: FDA-Public Use
  Company Number: GB-TEVA-2019-GB-1098026

PATIENT
  Age: 70 Year
  Sex: Male
  Weight: 72 kg

DRUGS (20)
  1. NYSTAN [Concomitant]
     Active Substance: NYSTATIN
     Dosage: SWILL WITH 1ML 4 TIMES PER DAY. THEN NIL BY MOUTH FOR 1 HOUR.
     Dates: start: 20190716
  2. LISINOPRIL. [Concomitant]
     Active Substance: LISINOPRIL
     Dosage: 1 DOSAGE FORMS PER DAY
     Dates: start: 20160218
  3. TIOTROPIUM [Concomitant]
     Active Substance: TIOTROPIUM
     Dosage: 1 DOSAGE FORMS PER DAY
     Route: 055
     Dates: start: 20181031
  4. SODIUM CHLORIDE. [Concomitant]
     Active Substance: SODIUM CHLORIDE
     Dosage: ONE UP TO 4 TIMES A DAY
     Dates: start: 20190118
  5. FEXOFENADINE [Concomitant]
     Active Substance: FEXOFENADINE HYDROCHLORIDE
     Dosage: 1 DOSAGE FORMS PER DAY
     Dates: start: 20190716
  6. GAVISCON ADVANCE [Concomitant]
     Active Substance: POTASSIUM BICARBONATE\SODIUM ALGINATE
     Dosage: 5ML OR 10ML 4 TIMES PER DAY.
     Dates: start: 20150302
  7. CARBOCISTEINE [Concomitant]
     Active Substance: CARBOCYSTEINE
     Dosage: 6 DOSAGE FORMS PER DAY
     Dates: start: 20140409
  8. ACETYLSALICYLIC ACID [Concomitant]
     Active Substance: ASPIRIN
     Dosage: 1 DOSAGE FORMS PER DAY
     Dates: start: 20150711
  9. CALCIUM CARBONATE. [Concomitant]
     Active Substance: CALCIUM CARBONATE
     Dosage: 2 DOSAGE FORMS PER DAY
     Dates: start: 20190705
  10. SERETIDE [Concomitant]
     Active Substance: FLUTICASONE PROPIONATE\SALMETEROL XINAFOATE
     Dosage: 2 DOSAGE FORMS PER DAY
     Route: 055
     Dates: start: 20180906
  11. CLARITHROMYCIN. [Concomitant]
     Active Substance: CLARITHROMYCIN
     Dosage: 1 DOSAGE FORMS PER 12 HOURS
     Dates: start: 20190716
  12. URSODEOXYCHOLIC ACID [Concomitant]
     Active Substance: URSODIOL
     Dosage: 4 DOSAGE FORMS PER DAY
     Dates: start: 20180906
  13. OMEPRAZOLE. [Concomitant]
     Active Substance: OMEPRAZOLE
     Dosage: 2 DOSAGE FORMS PER DAY
     Dates: start: 20190211
  14. STERI-NEB SALBUTAMOL [Concomitant]
     Dosage: INHALE 1 DOSE 3-4 TIMES PER DAY.
     Route: 055
     Dates: start: 20190225
  15. TRAMADOL. [Concomitant]
     Active Substance: TRAMADOL
     Dosage: 1-2 UP TO FOUR TIMES A DAY.
     Dates: start: 20180531
  16. SALBUTAMOL [Concomitant]
     Active Substance: ALBUTEROL
     Dosage: TAKE 1-2 PUFFS MAXIMUM EVERY 4 HOURS.
     Dates: start: 20121221
  17. DOXYCYCLINE. [Concomitant]
     Active Substance: DOXYCYCLINE
     Dosage: TAKE TWO ON DAY 1. THEN TAKE ONE CAPS
     Dates: start: 20190627, end: 20190702
  18. AMOXICILLIN. [Suspect]
     Active Substance: AMOXICILLIN
     Dosage: 500 MG
     Dates: start: 20190716
  19. CAPSAICIN. [Concomitant]
     Active Substance: CAPSAICIN
     Indication: MUSCULOSKELETAL PAIN
     Dosage: APPLY 3-4 TIMES PER DAY.
     Dates: start: 20190418, end: 20190428
  20. PREDNISOLONE. [Concomitant]
     Active Substance: PREDNISOLONE
     Dosage: FOR 7 DAYS, 6 DOSAGE FORMS PER DAY
     Dates: start: 20190705

REACTIONS (1)
  - Dyspnoea [Recovered/Resolved]

NARRATIVE: CASE EVENT DATE: 20190716
